FAERS Safety Report 4592683-0 (Version None)
Quarter: 2005Q1

REPORT INFORMATION
  Report Type: 
  Country: None (occurrence: None)
  Receive Date: 20050222
  Receipt Date: 20050210
  Transmission Date: 20050727
  Serious: Yes (Life-Threatening)
  Sender: FDA-Public Use
  Company Number: 2005CG00332

PATIENT
  Age: 55 Year
  Sex: Female
  Weight: 78 kg

DRUGS (8)
  1. BUPIVACAINE [Suspect]
     Indication: HEADACHE
     Dosage: 10 MG ONCE ED
     Route: 008
  2. BUPIVACAINE [Suspect]
     Indication: PAIN IN EXTREMITY
     Dosage: 10 MG ONCE ED
     Route: 008
  3. BUPIVACAINE [Suspect]
     Indication: HEADACHE
     Dosage: 50 MG ONCE RNB
     Route: 051
  4. BUPIVACAINE [Suspect]
     Indication: PAIN IN EXTREMITY
     Dosage: 50 MG ONCE RNB
     Route: 051
  5. BOTULINUM TOXIN TYPE A [Suspect]
     Indication: HEADACHE
     Dosage: 100 IU ONCE RNB
  6. BOTULINUM TOXIN TYPE A [Suspect]
     Indication: PAIN IN EXTREMITY
     Dosage: 100 IU ONCE RNB
  7. LITHIUM [Concomitant]
  8. MORPHINE [Concomitant]

REACTIONS (4)
  - APHONIA [None]
  - DYSPHONIA [None]
  - HYPOTENSION [None]
  - RESPIRATORY ARREST [None]
